FAERS Safety Report 20416915 (Version 3)
Quarter: 2022Q2

REPORT INFORMATION
  Report Type: Report from Study
  Country: US (occurrence: US)
  Receive Date: 20220202
  Receipt Date: 20220621
  Transmission Date: 20220721
  Serious: Yes (Hospitalization)
  Sender: FDA-Public Use
  Company Number: US-ALKERMES INC.-ALK-2022-000504

PATIENT
  Age: 42 Year
  Sex: Female

DRUGS (43)
  1. VIVITROL [Suspect]
     Active Substance: NALTREXONE
     Indication: Drug use disorder
     Dosage: 380 MILLIGRAM, QMO
     Route: 030
     Dates: start: 20220110
  2. BUPRENORPHINE [Suspect]
     Active Substance: BUPRENORPHINE
     Indication: Drug dependence
     Dosage: 4 MILLIGRAM, QD
     Route: 048
     Dates: start: 20220105, end: 20220105
  3. NALTREXONE [Suspect]
     Active Substance: NALTREXONE
     Indication: Drug dependence
     Dosage: 6 MILLIGRAM, QD
     Route: 048
     Dates: start: 20220109, end: 20220109
  4. NALTREXONE [Suspect]
     Active Substance: NALTREXONE
     Dosage: 2 MILLIGRAM, QD
     Route: 048
     Dates: start: 20220108, end: 20220108
  5. NALTREXONE [Suspect]
     Active Substance: NALTREXONE
     Dosage: 1 MILLIGRAM, QD
     Route: 048
     Dates: start: 20220107, end: 20220107
  6. NALTREXONE [Suspect]
     Active Substance: NALTREXONE
     Dosage: LOW DOSE TITRATION
     Route: 048
     Dates: start: 20220104, end: 20220104
  7. XANAX [Concomitant]
     Active Substance: ALPRAZOLAM
     Indication: Product used for unknown indication
     Dosage: UNK
     Route: 065
  8. QUETIAPINE [Concomitant]
     Active Substance: QUETIAPINE
     Indication: Product used for unknown indication
     Dosage: UNK
     Route: 065
  9. ZOLPIDEM [Concomitant]
     Active Substance: ZOLPIDEM TARTRATE
     Indication: Product used for unknown indication
     Dosage: UNK
     Route: 065
  10. CHLORDIAZEPOXIDE [Concomitant]
     Active Substance: CHLORDIAZEPOXIDE
     Indication: Product used for unknown indication
     Dosage: UNK
     Route: 065
  11. PROMETHAZINE [Concomitant]
     Active Substance: PROMETHAZINE HYDROCHLORIDE
     Indication: Product used for unknown indication
     Dosage: UNK
     Route: 065
  12. LOPERAMIDE [Concomitant]
     Active Substance: LOPERAMIDE
     Indication: Product used for unknown indication
     Dosage: UNK
     Route: 065
  13. IBUPROFEN [Concomitant]
     Active Substance: IBUPROFEN
     Indication: Product used for unknown indication
     Dosage: UNK
     Route: 065
  14. CYCLOBENZAPRINE [Concomitant]
     Active Substance: CYCLOBENZAPRINE
     Indication: Product used for unknown indication
     Dosage: UNK
     Route: 065
  15. CALCIUM CARBONATE [Concomitant]
     Active Substance: CALCIUM CARBONATE
     Indication: Product used for unknown indication
     Dosage: UNK
     Route: 065
  16. ACETAMINOPHEN [Concomitant]
     Active Substance: ACETAMINOPHEN
     Indication: Product used for unknown indication
     Dosage: UNK
     Route: 065
  17. VITAMINS [Concomitant]
     Active Substance: VITAMINS
     Indication: Product used for unknown indication
     Dosage: UNK
     Route: 065
  18. THIAMINE [Concomitant]
     Active Substance: THIAMINE
     Indication: Product used for unknown indication
     Dosage: UNK
     Route: 065
  19. FOLIC ACID [Concomitant]
     Active Substance: FOLIC ACID
     Indication: Product used for unknown indication
     Dosage: UNK
     Route: 065
  20. TRAZODONE [Concomitant]
     Active Substance: TRAZODONE HYDROCHLORIDE
     Indication: Product used for unknown indication
     Dosage: UNK
     Route: 065
  21. UNSPECIFIED INGREDIENT [Concomitant]
     Active Substance: UNSPECIFIED INGREDIENT
     Indication: Product used for unknown indication
     Dosage: UNK
     Route: 065
  22. VISTARIL [Concomitant]
     Active Substance: HYDROXYZINE PAMOATE
     Indication: Product used for unknown indication
     Dosage: UNK
     Route: 065
  23. PROZAC [Concomitant]
     Active Substance: FLUOXETINE HYDROCHLORIDE
     Indication: Product used for unknown indication
     Dosage: UNK
     Route: 065
  24. LIBRIUM [Concomitant]
     Active Substance: CHLORDIAZEPOXIDE HYDROCHLORIDE
     Indication: Product used for unknown indication
     Dosage: UNK
     Route: 065
  25. PROCHLORPERAZINE [Concomitant]
     Active Substance: PROCHLORPERAZINE
     Indication: Product used for unknown indication
     Dosage: UNK
     Route: 065
  26. HYDROXYZINE [Concomitant]
     Active Substance: HYDROXYZINE HYDROCHLORIDE
     Indication: Product used for unknown indication
     Dosage: UNK
     Route: 065
  27. BACLOFEN [Concomitant]
     Active Substance: BACLOFEN
     Indication: Product used for unknown indication
  28. NICOTINE [Concomitant]
     Active Substance: NICOTINE
     Indication: Product used for unknown indication
     Dosage: UNK
     Route: 065
  29. CLONIDINE [Concomitant]
     Active Substance: CLONIDINE
     Indication: Prophylaxis
     Dosage: 0.2 MILLIGRAM, QD
     Route: 048
     Dates: start: 20220110, end: 20220110
  30. CLONIDINE [Concomitant]
     Active Substance: CLONIDINE
     Dosage: 0.4 MILLIGRAM, QD
     Route: 048
     Dates: start: 20220109, end: 20220109
  31. CLONIDINE [Concomitant]
     Active Substance: CLONIDINE
     Dosage: 0.6 MILLIGRAM, QD
     Route: 048
     Dates: start: 20220108, end: 20220108
  32. CLONIDINE [Concomitant]
     Active Substance: CLONIDINE
     Dosage: 0.6 MILLIGRAM, QD
     Route: 048
     Dates: start: 20220107, end: 20220107
  33. CLONIDINE [Concomitant]
     Active Substance: CLONIDINE
     Dosage: 0.6 MILLIGRAM, QD
     Route: 048
     Dates: start: 20220106, end: 20220106
  34. CLONIDINE [Concomitant]
     Active Substance: CLONIDINE
     Dosage: 0.4 MILLIGRAM, QD
     Route: 048
     Dates: start: 20220105, end: 20220105
  35. CLONIDINE [Concomitant]
     Active Substance: CLONIDINE
     Dosage: 0.2 MILLIGRAM, QD
     Route: 048
     Dates: start: 20220104, end: 20220104
  36. CLONIDINE [Concomitant]
     Active Substance: CLONIDINE
     Dosage: 0.4 MILLIGRAM, QD
     Route: 048
     Dates: start: 20220103, end: 20220103
  37. CLONAZEPAM [Concomitant]
     Active Substance: CLONAZEPAM
     Indication: Prophylaxis
     Dosage: 1 MILLIGRAM, QD
     Route: 048
     Dates: start: 20220110, end: 20220110
  38. CLONAZEPAM [Concomitant]
     Active Substance: CLONAZEPAM
     Dosage: 3 MILLIGRAM, QD
     Route: 048
     Dates: start: 20220109, end: 20220109
  39. CLONAZEPAM [Concomitant]
     Active Substance: CLONAZEPAM
     Dosage: 4 MILLIGRAM, QD
     Route: 048
     Dates: start: 20220108, end: 20220108
  40. CLONAZEPAM [Concomitant]
     Active Substance: CLONAZEPAM
     Dosage: 4 MILLIGRAM, QD
     Route: 048
     Dates: start: 20220107, end: 20220107
  41. CLONAZEPAM [Concomitant]
     Active Substance: CLONAZEPAM
     Dosage: 4 MILLIGRAM, QD
     Route: 048
     Dates: start: 20220106, end: 20220106
  42. CLONAZEPAM [Concomitant]
     Active Substance: CLONAZEPAM
     Dosage: 4 MILLIGRAM, QD
     Route: 048
     Dates: start: 20220105, end: 20220105
  43. CLONAZEPAM [Concomitant]
     Active Substance: CLONAZEPAM
     Dosage: 1 MILLIGRAM, QD
     Route: 048
     Dates: start: 20220104, end: 20220104

REACTIONS (1)
  - Suicide attempt [Recovered/Resolved]

NARRATIVE: CASE EVENT DATE: 20220116
